FAERS Safety Report 8405582 (Version 10)
Quarter: 2013Q3

REPORT INFORMATION
  Report Type: Report from Study
  Country: CA (occurrence: CA)
  Receive Date: 20120214
  Receipt Date: 20130708
  Transmission Date: 20140515
  Serious: Yes (Death, Hospitalization, Other)
  Sender: FDA-Public Use
  Company Number: PHHY2012CA011404

PATIENT
  Sex: Female

DRUGS (2)
  1. AFINITOR [Suspect]
     Indication: NEUROENDOCRINE TUMOUR
     Dosage: 10 MG, QD
     Route: 048
  2. SANDOSTATIN LAR [Suspect]
     Indication: NEUROENDOCRINE TUMOUR
     Dosage: 30 MG, EVERY 3 WEEKS
     Route: 030
     Dates: start: 20120112

REACTIONS (7)
  - Death [Fatal]
  - Hip fracture [Unknown]
  - Myocardial infarction [Unknown]
  - Dyspnoea [Unknown]
  - Haemoglobin decreased [Unknown]
  - Blood pressure increased [Unknown]
  - Diarrhoea [Unknown]
